FAERS Safety Report 6120939-9 (Version None)
Quarter: 2009Q1

REPORT INFORMATION
  Report Type: 
  Country: None (occurrence: None)
  Receive Date: 20090312
  Receipt Date: 20090312
  Transmission Date: 20090719
  Serious: Yes (Other)
  Sender: FDA-Public Use
  Company Number: None

PATIENT
  Age: 62 Year
  Sex: Female
  Weight: 96.6162 kg

DRUGS (1)
  1. NAPROXEN [Suspect]

REACTIONS (5)
  - ASTHMA [None]
  - OEDEMA MOUTH [None]
  - PAIN [None]
  - PRURITUS [None]
  - TOOTH ABSCESS [None]
